FAERS Safety Report 6994549-5 (Version None)
Quarter: 2010Q3

REPORT INFORMATION
  Report Type: 
  Country: None (occurrence: None)
  Receive Date: 20100917
  Receipt Date: 20100908
  Transmission Date: 20110219
  Serious: Yes (Other)
  Sender: FDA-Public Use
  Company Number: US-AMGEN-KDL436868

PATIENT
  Sex: Female
  Weight: 78.5 kg

DRUGS (4)
  1. ENBREL [Suspect]
     Indication: PRODUCT USED FOR UNKNOWN INDICATION
  2. HUMIRA [Suspect]
     Indication: RHEUMATOID ARTHRITIS
     Route: 058
     Dates: start: 20060101, end: 20090801
  3. VALSARTAN [Concomitant]
  4. AZATHIOPRINE [Concomitant]

REACTIONS (4)
  - ABDOMINAL PAIN [None]
  - BREAST CANCER [None]
  - PNEUMONIA CRYPTOCOCCAL [None]
  - PROTEIN TOTAL INCREASED [None]
